FAERS Safety Report 9165220 (Version 1)
Quarter: 2013Q1

REPORT INFORMATION
  Report Type: Spontaneous
  Country: US (occurrence: None)
  Receive Date: 20130314
  Receipt Date: 20130314
  Transmission Date: 20140127
  Serious: No
  Sender: FDA-Public Use
  Company Number: None

PATIENT
  Age: 86 Year
  Sex: 0

DRUGS (1)
  1. XTANDI 40MG [Suspect]
     Indication: PROSTATE CANCER
     Dosage: 4 DOSE QD PO
     Route: 048

REACTIONS (1)
  - Drug ineffective [None]
